FAERS Safety Report 5127547-7 (Version None)
Quarter: 2006Q4

REPORT INFORMATION
  Report Type: 
  Country: None (occurrence: None)
  Receive Date: 20061010
  Receipt Date: 20060915
  Transmission Date: 20070319
  Serious: Yes (Disabling)
  Sender: FDA-Public Use
  Company Number: 2006112219

PATIENT
  Age: 86 Year
  Sex: Male

DRUGS (4)
  1. LYRICA [Suspect]
     Indication: NEURALGIA
     Dosage: 150 MG (75 MG, 2 IN 1 D), ORAL
     Route: 048
     Dates: start: 20060701, end: 20060901
  2. LORAZEPAM [Suspect]
     Indication: SLEEP DISORDER
  3. ZOLPIDEM TARTRATE [Concomitant]
     Indication: SLEEP DISORDER
  4. IMOVANE                 (ZOPICLONE) [Concomitant]
     Indication: SLEEP DISORDER

REACTIONS (11)
  - ANXIETY [None]
  - BURNING SENSATION [None]
  - DRUG INEFFECTIVE [None]
  - DRY MOUTH [None]
  - DYSKINESIA [None]
  - GAIT DISTURBANCE [None]
  - MUSCLE CONTRACTIONS INVOLUNTARY [None]
  - NIGHTMARE [None]
  - PAIN IN EXTREMITY [None]
  - PARAESTHESIA [None]
  - THINKING ABNORMAL [None]
